FAERS Safety Report 14869168 (Version 1)
Quarter: 2018Q2

REPORT INFORMATION
  Report Type: Spontaneous
  Country: US (occurrence: US)
  Receive Date: 20180423
  Receipt Date: 20180423
  Transmission Date: 20180711
  Serious: No
  Sender: FDA-Public Use
  Company Number: None

PATIENT
  Age: 52 Year
  Sex: Male
  Weight: 70.76 kg

DRUGS (2)
  1. CEFTRIAXONE 1000MG VIAL UNKNOWN [Suspect]
     Active Substance: CEFTRIAXONE
     Indication: AORTITIS
     Route: 042
     Dates: start: 20180415, end: 20180417
  2. DAPTOMYCIN. [Concomitant]
     Active Substance: DAPTOMYCIN

REACTIONS (1)
  - Urticaria [None]

NARRATIVE: CASE EVENT DATE: 20180415
